FAERS Safety Report 15794526 (Version 1)
Quarter: 2019Q1

REPORT INFORMATION
  Report Type: Report from Study
  Country: US (occurrence: US)
  Receive Date: 20190107
  Receipt Date: 20190107
  Transmission Date: 20190417
  Serious: Yes (Other)
  Sender: FDA-Public Use
  Company Number: US-BAYER-2019-005200

PATIENT
  Sex: Male

DRUGS (2)
  1. XARELTO [Suspect]
     Active Substance: RIVAROXABAN
     Indication: PENILE PROSTHESIS INSERTION
     Dosage: UNK
  2. BAYER LOW DOSE [Suspect]
     Active Substance: ASPIRIN
     Indication: PENILE PROSTHESIS INSERTION
     Dosage: 81 MG

REACTIONS (3)
  - Product use in unapproved indication [None]
  - Off label use [None]
  - Haematoma [None]
